FAERS Safety Report 24387265 (Version 1)
Quarter: 2024Q4

REPORT INFORMATION
  Report Type: Spontaneous
  Country: US (occurrence: None)
  Receive Date: 20241001
  Receipt Date: 20241001
  Transmission Date: 20250114
  Serious: Yes (Other)
  Sender: Public
  Company Number: None

PATIENT
  Age: 48 Year
  Sex: Female

DRUGS (1)
  1. CABENUVA [Suspect]
     Active Substance: CABOTEGRAVIR\RILPIVIRINE
     Indication: HIV infection
     Dosage: OTHER FREQUENCY : EVERY 8 WEEKS;?
     Route: 030
     Dates: start: 20230705

REACTIONS (3)
  - Injection site reaction [None]
  - Back pain [None]
  - Pain [None]

NARRATIVE: CASE EVENT DATE: 20240927
